FAERS Safety Report 11728580 (Version 1)
Quarter: 2015Q4

REPORT INFORMATION
  Report Type: Spontaneous
  Country: US (occurrence: US)
  Receive Date: 20151110
  Receipt Date: 20151110
  Transmission Date: 20160304
  Serious: No
  Sender: FDA-Public Use
  Company Number: US-ELI_LILLY_AND_COMPANY-US201112001672

PATIENT
  Sex: Female

DRUGS (1)
  1. FORTEO [Suspect]
     Active Substance: TERIPARATIDE
     Indication: OSTEOPOROSIS
     Dosage: 1 DF, QD

REACTIONS (15)
  - Dehydration [Unknown]
  - Vomiting [Recovered/Resolved]
  - Nausea [Recovered/Resolved]
  - Tremor [Recovered/Resolved]
  - Sleep disorder due to a general medical condition [Recovered/Resolved]
  - Blood potassium increased [Unknown]
  - Palpitations [Recovered/Resolved]
  - Thirst [Recovered/Resolved]
  - Performance status decreased [Recovered/Resolved]
  - Blood sodium increased [Unknown]
  - Dyspnoea [Recovered/Resolved]
  - Insomnia [Recovered/Resolved]
  - Feeling hot [Recovered/Resolved]
  - Dizziness [Recovered/Resolved]
  - Pollakiuria [Unknown]
